FAERS Safety Report 8557989-9 (Version None)
Quarter: 2012Q3

REPORT INFORMATION
  Report Type: 
  Country: None (occurrence: None)
  Receive Date: 20120801
  Receipt Date: 20120724
  Transmission Date: 20120928
  Serious: Yes (Other)
  Sender: FDA-Public Use
  Company Number: US-ALLERGAN-1210216US

PATIENT
  Age: 81 Year
  Sex: Female

DRUGS (2)
  1. XALATAN [Concomitant]
     Indication: INTRAOCULAR PRESSURE INCREASED
     Dosage: 2 GTT, UNK
     Route: 047
  2. ALPHAGAN P [Suspect]
     Indication: INTRAOCULAR PRESSURE INCREASED
     Dosage: 2 GTT, UNK
     Route: 047
     Dates: start: 20100101

REACTIONS (4)
  - BRADYCARDIA [None]
  - ROAD TRAFFIC ACCIDENT [None]
  - LACERATION [None]
  - SYNCOPE [None]
